FAERS Safety Report 7575483-9 (Version None)
Quarter: 2011Q2

REPORT INFORMATION
  Report Type: 
  Country: None (occurrence: None)
  Receive Date: 20110627
  Receipt Date: 20110616
  Transmission Date: 20111010
  Serious: Yes (Other)
  Sender: FDA-Public Use
  Company Number: PHHY2011GB53024

PATIENT
  Sex: Male

DRUGS (5)
  1. FYBOGEL [Concomitant]
  2. SERTRALINE HYDROCHLORIDE [Concomitant]
  3. NOLVADEX [Suspect]
     Indication: PROSTATE CANCER
     Dosage: 20 MG, BID
     Route: 048
  4. BICALUTAMIDE [Suspect]
     Indication: PROSTATE CANCER
     Dosage: 150 MG, QD
     Route: 048
  5. TEMAZEPAM [Concomitant]

REACTIONS (1)
  - OSTEOPOROSIS [None]
